FAERS Safety Report 4685902-3 (Version None)
Quarter: 2005Q2

REPORT INFORMATION
  Report Type: 
  Country: None (occurrence: None)
  Receive Date: 20050607
  Receipt Date: 20050607
  Transmission Date: 20051028
  Serious: Yes (Other)
  Sender: FDA-Public Use
  Company Number: None

PATIENT
  Sex: Female
  Weight: 81.6475 kg

DRUGS (7)
  1. TUSSIN DM -NDC 12333-9501-2- 100 MG GUAIFENESIN, 10 MG LONGS WELLNESS [Suspect]
     Indication: ASTHENIA
     Dosage: 2 TSP EVERY 4 HOURS ORAL
     Route: 048
     Dates: start: 20050523, end: 20050527
  2. TUSSIN DM -NDC 12333-9501-2- 100 MG GUAIFENESIN, 10 MG LONGS WELLNESS [Suspect]
     Indication: COUGH
     Dosage: 2 TSP EVERY 4 HOURS ORAL
     Route: 048
     Dates: start: 20050523, end: 20050527
  3. TUSSIN DM -NDC 12333-9501-2- 100 MG GUAIFENESIN, 10 MG LONGS WELLNESS [Suspect]
     Indication: INFLUENZA
     Dosage: 2 TSP EVERY 4 HOURS ORAL
     Route: 048
     Dates: start: 20050523, end: 20050527
  4. TUSSIN DM -NDC 12333-9501-2- 100 MG GUAIFENESIN, 10 MG LONGS WELLNESS [Suspect]
     Indication: NASOPHARYNGITIS
     Dosage: 2 TSP EVERY 4 HOURS ORAL
     Route: 048
     Dates: start: 20050523, end: 20050527
  5. TUSSIN DM -NDC 12333-9501-2- 100 MG GUAIFENESIN, 10 MG LONGS WELLNESS [Suspect]
     Indication: RHINORRHOEA
     Dosage: 2 TSP EVERY 4 HOURS ORAL
     Route: 048
     Dates: start: 20050523, end: 20050527
  6. ANTI-HISTAMINE TAB [Concomitant]
     Indication: PYREXIA
  7. DIPHENHYDRAMINE HCL [Concomitant]

REACTIONS (9)
  - ASTHENIA [None]
  - BODY TEMPERATURE INCREASED [None]
  - COUGH [None]
  - DRUG INEFFECTIVE [None]
  - OXYGEN SATURATION DECREASED [None]
  - PAIN [None]
  - PHARMACEUTICAL PRODUCT COMPLAINT [None]
  - SPUTUM RETENTION [None]
  - VIRAL INFECTION [None]
